FAERS Safety Report 7718813-7 (Version None)
Quarter: 2011Q3

REPORT INFORMATION
  Report Type: 
  Country: None (occurrence: None)
  Receive Date: 20110830
  Receipt Date: 20110819
  Transmission Date: 20111222
  Serious: Yes (Hospitalization, Other)
  Sender: FDA-Public Use
  Company Number: FR-ACTELION-A-CH2004-08361

PATIENT
  Sex: Female
  Weight: 48.5 kg

DRUGS (6)
  1. CLONAZEPAM [Concomitant]
  2. ZAVESCA [Suspect]
     Dosage: 100 MG, QD
     Route: 048
     Dates: start: 20040419, end: 20040401
  3. ZAVESCA [Suspect]
     Indication: GAUCHER'S DISEASE
     Dosage: 100 MG, TID
     Route: 048
     Dates: start: 20040422
  4. KEPPRA [Concomitant]
  5. TOPIRAMATE [Concomitant]
  6. LAMICTAL [Concomitant]

REACTIONS (16)
  - DEMYELINATING POLYNEUROPATHY [None]
  - ACTIVITIES OF DAILY LIVING IMPAIRED [None]
  - NEUROPATHY PERIPHERAL [None]
  - EPILEPSY [None]
  - DIARRHOEA [None]
  - PARAESTHESIA [None]
  - LIGAMENT SPRAIN [None]
  - WHEELCHAIR USER [None]
  - ANTIBODY TEST POSITIVE [None]
  - PERIPHERAL SENSORY NEUROPATHY [None]
  - WEIGHT DECREASED [None]
  - FLATULENCE [None]
  - MUSCLE ATROPHY [None]
  - FOOT FRACTURE [None]
  - RADICULOPATHY [None]
  - GUILLAIN-BARRE SYNDROME [None]
